FAERS Safety Report 5210601-9 (Version None)
Quarter: 2007Q1

REPORT INFORMATION
  Report Type: 
  Country: None (occurrence: None)
  Receive Date: 20070117
  Receipt Date: 20070108
  Transmission Date: 20070707
  Serious: Yes (Death, Hospitalization)
  Sender: FDA-Public Use
  Company Number: FR-MERCK-0701FRA00026

PATIENT
  Age: 45 Year
  Sex: Male
  Weight: 48 kg

DRUGS (16)
  1. PRIMAXIN [Suspect]
     Indication: LUNG INFECTION PSEUDOMONAL
     Route: 042
     Dates: start: 20061026, end: 20061109
  2. PRIMAXIN [Suspect]
     Route: 042
     Dates: start: 20061123, end: 20061129
  3. CIPROFLOXACIN HCL [Suspect]
     Indication: LUNG INFECTION PSEUDOMONAL
     Route: 042
     Dates: start: 20061026, end: 20061109
  4. CIPROFLOXACIN HCL [Suspect]
     Route: 042
     Dates: start: 20061123, end: 20061128
  5. CIPROFLOXACIN HCL [Suspect]
     Route: 042
     Dates: start: 20061129, end: 20061203
  6. ZOPICLONE [Concomitant]
     Route: 048
     Dates: start: 20061117, end: 20061121
  7. ZOPICLONE [Concomitant]
     Route: 048
     Dates: start: 20061122, end: 20061125
  8. SULFAMETHOXAZOLE AND TRIMETHOPRIM [Concomitant]
     Indication: PNEUMOCYSTIS JIROVECI PNEUMONIA
     Route: 048
     Dates: start: 20061013, end: 20061203
  9. OXAZEPAM [Concomitant]
     Route: 048
     Dates: start: 20061117, end: 20061124
  10. CITALOPRAM HYDROBROMIDE [Concomitant]
     Route: 048
     Dates: start: 20061117, end: 20061125
  11. CALCIUM (UNSPECIFIED) [Concomitant]
     Route: 048
  12. FERROUS SULFATE [Concomitant]
     Route: 048
  13. DARBEPOETIN ALFA [Concomitant]
     Route: 058
  14. CEFTRIAXONE SODIUM [Concomitant]
     Route: 065
     Dates: start: 20061013
  15. ACYCLOVIR [Concomitant]
     Indication: HERPES VIRUS INFECTION
     Route: 065
     Dates: start: 20061020, end: 20061029
  16. GANCICLOVIR [Concomitant]
     Indication: CYTOMEGALOVIRUS INFECTION
     Route: 065
     Dates: start: 20061103

REACTIONS (2)
  - CONVULSION [None]
  - DEATH [None]
